FAERS Safety Report 9615812 (Version 4)
Quarter: 2015Q3

REPORT INFORMATION
  Report Type: Report from Study
  Country: AR (occurrence: AR)
  Receive Date: 20131011
  Receipt Date: 20150831
  Transmission Date: 20151125
  Serious: Yes (Hospitalization, Other)
  Sender: FDA-Public Use
  Company Number: PHHY2013AR061555

PATIENT
  Age: 31 Year
  Sex: Female
  Weight: 85 kg

DRUGS (18)
  1. LEVOTHYROXINE. [Concomitant]
     Active Substance: LEVOTHYROXINE
     Route: 065
     Dates: start: 201201
  2. CLOBAZAM [Concomitant]
     Active Substance: CLOBAZAM
     Route: 065
     Dates: start: 201301
  3. SOM230 [Suspect]
     Active Substance: PASIREOTIDE
     Dosage: 60 MG, EVERY 28 DAYS
     Route: 030
     Dates: start: 201312
  4. LEVOTHYROXINE. [Concomitant]
     Active Substance: LEVOTHYROXINE
     Dosage: 200 MG, QD
     Dates: start: 2011
  5. CLOBAZAM [Concomitant]
     Active Substance: CLOBAZAM
     Indication: SEIZURE
     Dosage: 5 MG, QD
     Route: 065
  6. PHENYTOIN. [Suspect]
     Active Substance: PHENYTOIN
     Dosage: 300 MG, PER DAY
     Route: 065
  7. EPAMIN [Concomitant]
     Active Substance: PHENYTOIN SODIUM
     Dosage: 100 MG, TID
  8. EPAMIN [Concomitant]
     Active Substance: PHENYTOIN SODIUM
     Dosage: 100 MG, BID
  9. FOLIC ACID. [Concomitant]
     Active Substance: FOLIC ACID
     Dosage: 5 MG, PER DAY
  10. CLOBAZAM [Concomitant]
     Active Substance: CLOBAZAM
     Dosage: HALF TABLET DAILY
     Route: 065
  11. SOM230 [Suspect]
     Active Substance: PASIREOTIDE
     Indication: PITUITARY-DEPENDENT CUSHING^S SYNDROME
     Dosage: 40 MG, FOR EVERY 28 DAYS
     Route: 030
     Dates: start: 20130123, end: 20130904
  12. PHENYTOIN. [Suspect]
     Active Substance: PHENYTOIN
     Indication: SEIZURE
     Route: 065
     Dates: start: 201012
  13. PHENYTOIN. [Suspect]
     Active Substance: PHENYTOIN
     Dosage: UNK
     Route: 065
     Dates: start: 201201
  14. PHENYTOIN. [Suspect]
     Active Substance: PHENYTOIN
     Dosage: 300 MG, QD
     Route: 065
     Dates: start: 2011
  15. LEVOTHYROXINE. [Concomitant]
     Active Substance: LEVOTHYROXINE
     Indication: HYPOTHYROIDISM
     Dosage: UNK
     Route: 065
     Dates: start: 201011
  16. EPAMIN [Concomitant]
     Active Substance: PHENYTOIN SODIUM
     Indication: SEIZURE
     Dosage: 2 UNK, UNK
  17. ANTIBIOTICS [Concomitant]
     Active Substance: UNSPECIFIED INGREDIENT
     Dates: start: 20130906, end: 20130913
  18. URSODEOXYCHOLIC ACID [Concomitant]
     Active Substance: URSODIOL
     Dosage: 300 MG, PER DAY

REACTIONS (16)
  - White blood cell count increased [Unknown]
  - Mental impairment [Recovering/Resolving]
  - Seizure [Recovered/Resolved]
  - Dizziness [Unknown]
  - Hyponatraemia [Recovering/Resolving]
  - Adrenal insufficiency [Not Recovered/Not Resolved]
  - Hypoglycaemia [Recovered/Resolved]
  - Nausea [Recovering/Resolving]
  - Toxicity to various agents [Recovering/Resolving]
  - Somnolence [Unknown]
  - Cerebellar ataxia [Recovering/Resolving]
  - Hyperglycaemia [Recovered/Resolved]
  - Drug ineffective [Unknown]
  - Pollakiuria [Unknown]
  - Decreased appetite [Recovering/Resolving]
  - Skin infection [Recovered/Resolved]

NARRATIVE: CASE EVENT DATE: 20130213
